FAERS Safety Report 12208375 (Version 3)
Quarter: 2016Q3

REPORT INFORMATION
  Report Type: Spontaneous
  Country: US (occurrence: US)
  Receive Date: 20160324
  Receipt Date: 20160812
  Transmission Date: 20161109
  Serious: Yes (Other)
  Sender: FDA-Public Use
  Company Number: US-BAYER-2016-051187

PATIENT
  Age: 34 Year
  Sex: Female
  Weight: 88.44 kg

DRUGS (2)
  1. MIRENA [Suspect]
     Active Substance: LEVONORGESTREL
     Indication: CONTRACEPTION
     Dosage: 20 MCG/24HR, CONT
     Route: 015
     Dates: start: 20141120, end: 20151015
  2. HYDROCODONE [Concomitant]
     Active Substance: HYDROCODONE
     Indication: PAIN MANAGEMENT

REACTIONS (8)
  - Uterine injury [None]
  - Pelvic pain [None]
  - Nausea [None]
  - Muscle spasms [None]
  - Anxiety [None]
  - Depression [None]
  - Genital haemorrhage [Not Recovered/Not Resolved]
  - Device expulsion [None]

NARRATIVE: CASE EVENT DATE: 201510
